FAERS Safety Report 10661575 (Version 1)
Quarter: 2014Q4

REPORT INFORMATION
  Report Type: Report from Study
  Country: NL (occurrence: NL)
  Receive Date: 20141218
  Receipt Date: 20141218
  Transmission Date: 20150529
  Serious: Yes (Other)
  Sender: FDA-Public Use
  Company Number: PHHY2014NL163953

PATIENT
  Age: 84 Year
  Sex: Female

DRUGS (1)
  1. ZOMETA [Suspect]
     Active Substance: ZOLEDRONIC ACID
     Indication: BREAST CANCER METASTATIC
     Dosage: 4 MG/100 ML, ONCE EVERY 4 WEEKS
     Route: 042
     Dates: end: 20141211

REACTIONS (1)
  - Dementia [Not Recovered/Not Resolved]

NARRATIVE: CASE EVENT DATE: 20141211
